FAERS Safety Report 22123364 (Version 4)
Quarter: 2023Q2

REPORT INFORMATION
  Report Type: Spontaneous
  Country: CA (occurrence: CA)
  Receive Date: 20230322
  Receipt Date: 20230413
  Transmission Date: 20230721
  Serious: Yes (Other)
  Sender: FDA-Public Use
  Company Number: CA-BEH-2021135458

PATIENT
  Age: 89 Year
  Sex: Female

DRUGS (4)
  1. ALBUREX [Suspect]
     Active Substance: ALBUMIN HUMAN
     Indication: Acute kidney injury
     Dosage: 100 MILLILITER, TOT
     Route: 065
     Dates: start: 20210823, end: 20210823
  2. ALBUREX [Suspect]
     Active Substance: ALBUMIN HUMAN
     Indication: Nutritional supplementation
     Dosage: 100 MILLILITER, TOT
     Route: 065
     Dates: start: 20210823, end: 20210823
  3. ALBUREX [Suspect]
     Active Substance: ALBUMIN HUMAN
     Indication: Pancreatitis acute
     Dosage: 100 MILLILITER, TOT
     Route: 065
     Dates: start: 20210823, end: 20210824
  4. ALBUREX [Suspect]
     Active Substance: ALBUMIN HUMAN
     Dosage: 100 MILLILITER, TOT
     Route: 065
     Dates: start: 20210824, end: 20210824

REACTIONS (16)
  - Acute pulmonary oedema [Recovered/Resolved]
  - Nausea [Recovered/Resolved]
  - Wheezing [Recovered/Resolved]
  - Dyspnoea [Recovered/Resolved]
  - Tachycardia [Recovered/Resolved]
  - Blood pressure systolic increased [Recovered/Resolved]
  - Oxygen saturation decreased [Recovered/Resolved]
  - Tachypnoea [Recovered/Resolved]
  - Abdominal pain [Recovered/Resolved]
  - Abdominal pain upper [Recovered/Resolved]
  - Haemoptysis [Recovered/Resolved]
  - Abdominal distension [Unknown]
  - Vaginal haemorrhage [Unknown]
  - Abdominal discomfort [Unknown]
  - Constipation [Unknown]
  - Rales [Recovered/Resolved]

NARRATIVE: CASE EVENT DATE: 20210824
